FAERS Safety Report 9570812 (Version 2)
Quarter: 2014Q1

REPORT INFORMATION
  Report Type: Report from Study
  Country: US (occurrence: US)
  Receive Date: 20131001
  Receipt Date: 20140203
  Transmission Date: 20141002
  Serious: Yes (Hospitalization)
  Sender: FDA-Public Use
  Company Number: US-ROCHE-1283327

PATIENT
  Age: 82 Year
  Sex: Female

DRUGS (3)
  1. LUCENTIS [Suspect]
     Indication: AGE-RELATED MACULAR DEGENERATION
     Route: 050
  2. LUCENTIS [Suspect]
     Indication: NEOVASCULARISATION
  3. SYSTANE [Concomitant]
     Dosage: AS NEEDED IN LEFT EYE
     Route: 065

REACTIONS (3)
  - Cardiac disorder [Unknown]
  - Dry eye [Unknown]
  - Visual impairment [Unknown]
